FAERS Safety Report 11857682 (Version 1)
Quarter: 2015Q4

REPORT INFORMATION
  Report Type: Spontaneous
  Country: US (occurrence: None)
  Receive Date: 20151221
  Receipt Date: 20151221
  Transmission Date: 20160305
  Serious: Yes (Other)
  Sender: FDA-Public Use
  Company Number: None

PATIENT
  Age: 64 Month
  Sex: Female
  Weight: 50.8 kg

DRUGS (4)
  1. DESONIDE FLUCOSINE CREAM [Concomitant]
  2. SYSTANE NIGHTTIME [Suspect]
     Active Substance: MINERAL OIL\PETROLATUM
     Indication: DRY EYE
     Dates: start: 20151024, end: 20151028
  3. VITAMINS [Concomitant]
     Active Substance: VITAMINS
  4. SYSTANE EYEDROPS [Suspect]
     Active Substance: POLYETHYLENE GLYCOL 400\PROPYLENE GLYCOL
     Indication: DRY EYE
     Route: 047
     Dates: start: 20151031, end: 20151102

REACTIONS (6)
  - Instillation site irritation [None]
  - Lacrimation increased [None]
  - Instillation site erythema [None]
  - Eye pain [None]
  - Instillation site pain [None]
  - Vision blurred [None]

NARRATIVE: CASE EVENT DATE: 20151101
